FAERS Safety Report 14998743 (Version 2)
Quarter: 2018Q3

REPORT INFORMATION
  Report Type: Report from Study
  Country: DE (occurrence: DE)
  Receive Date: 20180612
  Receipt Date: 20180709
  Transmission Date: 20181010
  Serious: Yes (Death)
  Sender: FDA-Public Use
  Company Number: DE-ROCHE-1776665

PATIENT
  Age: 47 Year
  Sex: Male
  Weight: 65 kg

DRUGS (5)
  1. IRINOTECAN [Concomitant]
     Active Substance: IRINOTECAN
     Indication: COLORECTAL CANCER
     Dosage: 275?315 MG
     Route: 042
     Dates: start: 20160427, end: 20160706
  2. BEVACIZUMAB. [Suspect]
     Active Substance: BEVACIZUMAB
     Indication: COLORECTAL CANCER
     Route: 042
     Dates: start: 20160427, end: 20160706
  3. 5?FLUOROURACIL [Concomitant]
     Active Substance: FLUOROURACIL
     Indication: COLORECTAL CANCER
     Dosage: 600?700 MG
     Route: 040
     Dates: start: 20160427, end: 20160706
  4. 5?FLUOROURACIL [Concomitant]
     Active Substance: FLUOROURACIL
     Dosage: 3675?4200 MG
     Route: 041
     Dates: start: 20160427, end: 20160708
  5. FOLINIC ACID [Concomitant]
     Active Substance: LEUCOVORIN
     Indication: COLORECTAL CANCER
     Dosage: 600?700 MG
     Route: 042
     Dates: start: 20160427, end: 20160708

REACTIONS (2)
  - Diarrhoea [Not Recovered/Not Resolved]
  - Death [Fatal]

NARRATIVE: CASE EVENT DATE: 20160520
